FAERS Safety Report 4331014-8 (Version None)
Quarter: 2004Q1

REPORT INFORMATION
  Report Type: 
  Country: None (occurrence: None)
  Receive Date: 20040331
  Receipt Date: 20040318
  Transmission Date: 20041129
  Serious: Yes (Other)
  Sender: FDA-Public Use
  Company Number: 2004018796

PATIENT
  Sex: Female
  Weight: 72.5755 kg

DRUGS (8)
  1. LIPITOR [Suspect]
     Indication: BLOOD CHOLESTEROL INCREASED
     Dosage: 20 MG DAILY, ORAL
     Route: 048
  2. GEMFIBROZIL [Suspect]
     Indication: BLOOD CHOLESTEROL INCREASED
     Dosage: 20 MG DAILY, ORAL
     Route: 048
  3. PIROXICAM [Suspect]
     Indication: ARTHRITIS
     Dates: start: 20021101
  4. CHONDROITIN/GLUCOSAMINE (GLUCOSAMINE, CHONDROITIN) [Suspect]
     Indication: ARTHRITIS
     Dates: start: 20021101
  5. GENERAL NUTRIENTS [Suspect]
     Indication: ARTHRITIS
     Dates: start: 20021101
  6. INSULIN LISPRO (INSULIN LISPRO) [Concomitant]
  7. INSULIN GLARGINE (INSULIN GLARGINE) [Concomitant]
  8. METFORMIN HCL [Concomitant]

REACTIONS (4)
  - ARTHRALGIA [None]
  - ARTHRITIS [None]
  - INTERVERTEBRAL DISC PROTRUSION [None]
  - LOW DENSITY LIPOPROTEIN INCREASED [None]
